FAERS Safety Report 10334937 (Version 5)
Quarter: 2015Q1

REPORT INFORMATION
  Report Type: Report from Study
  Country: KR (occurrence: KR)
  Receive Date: 20140723
  Receipt Date: 20150205
  Transmission Date: 20150720
  Serious: Yes (Death)
  Sender: FDA-Public Use
  Company Number: KR-009507513-1407KOR003608

PATIENT
  Age: 77 Year
  Sex: Male
  Weight: 60.2 kg

DRUGS (5)
  1. CODEINE [Concomitant]
     Active Substance: CODEINE
     Indication: COUGH
     Dosage: 40 MG, TID
     Route: 048
     Dates: start: 20131203, end: 20140703
  2. PEMBROLIZUMAB. [Suspect]
     Active Substance: PEMBROLIZUMAB
     Dosage: 2 MG/KG, Q3W
     Route: 042
     Dates: start: 20140618, end: 20140618
  3. MEGESTROL ACETATE. [Concomitant]
     Active Substance: MEGESTROL ACETATE
     Indication: DECREASED APPETITE
     Dosage: 20 ML, QD
     Route: 048
     Dates: start: 20140117, end: 20140703
  4. CELECOXIB. [Concomitant]
     Active Substance: CELECOXIB
     Indication: CHEST PAIN
     Dosage: 200 MG, BID
     Route: 048
     Dates: start: 20140107, end: 20140703
  5. PEMBROLIZUMAB. [Suspect]
     Active Substance: PEMBROLIZUMAB
     Indication: NON-SMALL CELL LUNG CANCER
     Dosage: 2 MG/KG , Q3W
     Route: 042
     Dates: start: 20140305, end: 20140528

REACTIONS (1)
  - Death [Fatal]

NARRATIVE: CASE EVENT DATE: 20140704
